FAERS Safety Report 10152696 (Version 1)
Quarter: 2014Q2

REPORT INFORMATION
  Report Type: Spontaneous
  Country: US (occurrence: None)
  Receive Date: 20140502
  Receipt Date: 20140502
  Transmission Date: 20141212
  Serious: Yes (Hospitalization)
  Sender: FDA-Public Use
  Company Number: None

PATIENT
  Age: 2 Year
  Sex: Female
  Weight: 11.1 kg

DRUGS (1)
  1. PEG-L-ASPARAGINASE (K-H) [Suspect]
     Dates: start: 20140407

REACTIONS (9)
  - Abdominal distension [None]
  - Oliguria [None]
  - Hypotension [None]
  - Pancreatitis necrotising [None]
  - Ascites [None]
  - Pleural effusion [None]
  - Abdominal pain [None]
  - Convulsion [None]
  - Sepsis [None]
